FAERS Safety Report 13411284 (Version 3)
Quarter: 2019Q3

REPORT INFORMATION
  Report Type: Spontaneous
  Country: US (occurrence: US)
  Receive Date: 20170406
  Receipt Date: 20190916
  Transmission Date: 20191004
  Serious: No
  Sender: FDA-Public Use
  Company Number: US-JNJFOC-20170306948

PATIENT
  Sex: Male

DRUGS (2)
  1. RISPERDAL [Suspect]
     Active Substance: RISPERIDONE
     Indication: AGGRESSION
     Route: 048
     Dates: start: 19990921
  2. RISPERDAL [Suspect]
     Active Substance: RISPERIDONE
     Dosage: IN VARYING DOSES OF 0.5 MG, 01 MG, 1.5 MG AND 02 MG
     Route: 048
     Dates: start: 20050523, end: 20100515

REACTIONS (2)
  - Gynaecomastia [Unknown]
  - Emotional distress [Unknown]
